FAERS Safety Report 7406494-1 (Version None)
Quarter: 2011Q2

REPORT INFORMATION
  Report Type: 
  Country: None (occurrence: None)
  Receive Date: 20110405
  Receipt Date: 20110405
  Transmission Date: 20111010
  Serious: Yes (Death, Life-Threatening, Hospitalization, Disabling, Congenital Anomaly, Other)
  Sender: FDA-Public Use
  Company Number: None

PATIENT
  Age: 34 Year
  Sex: Female
  Weight: 45.3597 kg

DRUGS (1)
  1. LAMOTRIGINE [Suspect]
     Indication: AFFECTIVE DISORDER
     Dosage: ONE DAILY PO
     Route: 048
     Dates: start: 20110328, end: 20110330

REACTIONS (5)
  - TREMOR [None]
  - NAUSEA [None]
  - CLUMSINESS [None]
  - NONSPECIFIC REACTION [None]
  - NIGHT SWEATS [None]
